FAERS Safety Report 13049588 (Version 2)
Quarter: 2016Q4

REPORT INFORMATION
  Report Type: Report from Study
  Country: IT (occurrence: IT)
  Receive Date: 20161221
  Receipt Date: 20161228
  Transmission Date: 20170207
  Serious: Yes (Other)
  Sender: FDA-Public Use
  Company Number: IT-ROCHE-1867881

PATIENT
  Age: 70 Year
  Sex: Female
  Weight: 58 kg

DRUGS (5)
  1. CARDIOASPIRINA [Concomitant]
     Active Substance: ASPIRIN
     Dosage: ^100 MG GASTRORESISTANT TABLETS^ 30 TABLETS
     Route: 048
     Dates: start: 20050101, end: 20161213
  2. CARDICOR [Concomitant]
     Active Substance: BISOPROLOL
     Dosage: 28 X 2.5 MG TABLETS IN PVC/AL BLISTER PACK
     Route: 065
     Dates: start: 20050101, end: 20161213
  3. EUTIROX [Concomitant]
     Active Substance: LEVOTHYROXINE SODIUM
     Dosage: ^75 MICROGRAM TABLETS^ 50 TABLETS
     Route: 050
     Dates: start: 20100101, end: 20161213
  4. COBIMETINIB [Suspect]
     Active Substance: COBIMETINIB
     Indication: METASTATIC MALIGNANT MELANOMA
     Dosage: 20 MG -63 (3X21) TABLETS
     Route: 048
     Dates: start: 20160524, end: 20161210
  5. ZELBORAF [Suspect]
     Active Substance: VEMURAFENIB
     Indication: METASTATIC MALIGNANT MELANOMA
     Route: 048
     Dates: start: 20160412, end: 20161210

REACTIONS (2)
  - Diarrhoea [Recovering/Resolving]
  - Anaemia [Not Recovered/Not Resolved]

NARRATIVE: CASE EVENT DATE: 20161212
